FAERS Safety Report 9684892 (Version 1)
Quarter: 2013Q4

REPORT INFORMATION
  Report Type: Spontaneous
  Country: US (occurrence: US)
  Receive Date: 20131113
  Receipt Date: 20131113
  Transmission Date: 20140711
  Serious: Yes (Hospitalization)
  Sender: FDA-Public Use
  Company Number: US-009507513-1311USA002489

PATIENT
  Age: 22 Year
  Sex: Female
  Weight: 96.6 kg

DRUGS (3)
  1. NEXPLANON [Suspect]
     Indication: CONTRACEPTION
     Dosage: IMPLANT IN LELF ARM, 3 YEAR IMPLANT
     Route: 059
     Dates: start: 20130417
  2. AMOXICILLIN [Concomitant]
     Dosage: 500 MG, UNK
  3. IBUPROFEN [Concomitant]
     Dosage: 600 MG, UNK

REACTIONS (4)
  - Pneumonia [Unknown]
  - Lactation puerperal increased [Unknown]
  - Breast tenderness [Unknown]
  - Breast feeding [Recovered/Resolved]
